FAERS Safety Report 11120684 (Version 1)
Quarter: 2015Q2

REPORT INFORMATION
  Report Type: Spontaneous
  Country: IT (occurrence: IT)
  Receive Date: 20150519
  Receipt Date: 20150519
  Transmission Date: 20150821
  Serious: Yes (Hospitalization)
  Sender: FDA-Public Use
  Company Number: IT-BAYER-2015-233417

PATIENT
  Age: 89 Year
  Sex: Female

DRUGS (3)
  1. CLASTEON [Concomitant]
     Dosage: UNK
  2. LASIX [Concomitant]
     Active Substance: FUROSEMIDE
     Dosage: 25 MG, UNK
     Route: 048
  3. CARDIOASPIRIN [Suspect]
     Active Substance: ASPIRIN
     Indication: THROMBOSIS PROPHYLAXIS
     Dosage: 1 DF, QD
     Dates: start: 20150101, end: 20150406

REACTIONS (2)
  - Cerebral haemorrhage [Unknown]
  - Coma [Unknown]

NARRATIVE: CASE EVENT DATE: 20150406
